FAERS Safety Report 23462443 (Version 1)
Quarter: 2024Q1

REPORT INFORMATION
  Report Type: Spontaneous
  Country: US (occurrence: None)
  Receive Date: 20240130
  Receipt Date: 20240130
  Transmission Date: 20240410
  Serious: Yes (Death)
  Sender: FDA-Public Use
  Company Number: None

PATIENT
  Age: 61 Year
  Sex: Female
  Weight: 69.58 kg

DRUGS (16)
  1. EXEMESTANE [Suspect]
     Active Substance: EXEMESTANE
     Indication: Breast cancer female
     Dosage: FREQUENCY : DAILY;?
     Route: 048
     Dates: start: 20220819, end: 20240116
  2. IBRANCE [Suspect]
     Active Substance: PALBOCICLIB
     Indication: Breast cancer female
     Dosage: FREQUENCY : DAILY;?
     Route: 048
     Dates: start: 20220819, end: 20240116
  3. ALPRAZOLAM [Concomitant]
     Active Substance: ALPRAZOLAM
  4. PHENERGAN W/ CODEINE [Concomitant]
     Active Substance: CODEINE PHOSPHATE\PROMETHAZINE HYDROCHLORIDE
  5. TEMAZEPAM [Concomitant]
     Active Substance: TEMAZEPAM
  6. NORCO [Concomitant]
     Active Substance: ACETAMINOPHEN\HYDROCODONE BITARTRATE
  7. DEBROX [Concomitant]
     Active Substance: CARBAMIDE PEROXIDE
  8. DOXYCYCLINE [Concomitant]
     Active Substance: DOXYCYCLINE
  9. ERYTHROMYCIN [Concomitant]
     Active Substance: ERYTHROMYCIN
  10. SYNALAR [Concomitant]
     Active Substance: FLUOCINOLONE ACETONIDE
  11. MOTRIN [Concomitant]
     Active Substance: IBUPROFEN
  12. LIDOCAINE [Concomitant]
     Active Substance: LIDOCAINE
  13. ATIVAN [Concomitant]
     Active Substance: LORAZEPAM
  14. NARCAN [Concomitant]
     Active Substance: NALOXONE HYDROCHLORIDE
  15. OMEPRAZOLE [Concomitant]
     Active Substance: OMEPRAZOLE
  16. PROTONIX [Concomitant]
     Active Substance: PANTOPRAZOLE SODIUM

REACTIONS (2)
  - Breast cancer female [None]
  - Malignant neoplasm progression [None]

NARRATIVE: CASE EVENT DATE: 20240116
